FAERS Safety Report 10035919 (Version 2)
Quarter: 2014Q2

REPORT INFORMATION
  Report Type: Spontaneous
  Country: JP (occurrence: JP)
  Receive Date: 20140325
  Receipt Date: 20140404
  Transmission Date: 20141212
  Serious: No
  Sender: FDA-Public Use
  Company Number: JP-BRISTOL-MYERS SQUIBB COMPANY-20527776

PATIENT
  Age: 86 Year
  Sex: Male

DRUGS (6)
  1. ELIQUIS [Suspect]
     Route: 048
     Dates: start: 201402
  2. BISOPROLOL FUMARATE [Concomitant]
     Route: 048
  3. TAKEPRON [Concomitant]
     Route: 048
  4. FLIVAS [Concomitant]
     Route: 048
  5. BETANIS [Concomitant]
     Route: 048
  6. AMLODIPINE [Concomitant]
     Route: 048

REACTIONS (1)
  - Toxic skin eruption [Not Recovered/Not Resolved]
